FAERS Safety Report 6651319-5 (Version None)
Quarter: 2010Q1

REPORT INFORMATION
  Report Type: 
  Country: None (occurrence: None)
  Receive Date: 20100322
  Receipt Date: 20100308
  Transmission Date: 20100710
  Serious: Yes (Hospitalization, Other)
  Sender: FDA-Public Use
  Company Number: ALD1-GR-2010-0012

PATIENT
  Age: 40 Year
  Sex: Female

DRUGS (7)
  1. ALDOMET [Suspect]
     Indication: HYPERTENSION
     Dosage: 250 MG (3 IN 1 D), PER ORAL
     Route: 048
  2. THERAPY UNSPECIFIED [Concomitant]
  3. ESTRADIOL [Concomitant]
  4. ESTROGENS (UNSPECIFIED) [Concomitant]
  5. LEVOTHYROXINE (LEVOTHYROXINE SODIUM) (LEVOTHYROXINE SODIUM) [Concomitant]
  6. MEDROXYPROGESTERONE ACETATE (MEDROXYPROGESTETONE ACETATE) (MEDROXYPROG [Concomitant]
  7. PROGESTERONE (PROGESTERONE) (PROGESTERONE) [Concomitant]

REACTIONS (5)
  - ALANINE AMINOTRANSFERASE INCREASED [None]
  - ASPARTATE AMINOTRANSFERASE INCREASED [None]
  - DRUG EXPOSURE DURING PREGNANCY [None]
  - FOETAL GROWTH RETARDATION [None]
  - GAMMA-GLUTAMYLTRANSFERASE INCREASED [None]
